FAERS Safety Report 6820720-9 (Version None)
Quarter: 2010Q3

REPORT INFORMATION
  Report Type: 
  Country: None (occurrence: None)
  Receive Date: 20100707
  Receipt Date: 20070522
  Transmission Date: 20110219
  Serious: No
  Sender: FDA-Public Use
  Company Number: US-PFIZER INC-2007042174

PATIENT
  Sex: Male
  Weight: 84.1 kg

DRUGS (8)
  1. ZOLOFT [Suspect]
     Indication: ANXIETY
     Dates: start: 20070412
  2. ZOLOFT [Suspect]
     Indication: DEPRESSION
  3. LOTREL [Concomitant]
     Indication: HYPERTENSION
  4. LIPITOR [Concomitant]
     Indication: BLOOD CHOLESTEROL INCREASED
  5. XANAX [Concomitant]
  6. KLONOPIN [Concomitant]
  7. DALMANE [Concomitant]
     Indication: ANXIETY
  8. VICODIN [Concomitant]
     Indication: PAIN

REACTIONS (4)
  - BURNING SENSATION [None]
  - FALL [None]
  - HYPOAESTHESIA [None]
  - PARAESTHESIA [None]
